FAERS Safety Report 7985196-7 (Version None)
Quarter: 2011Q4

REPORT INFORMATION
  Report Type: 
  Country: None (occurrence: None)
  Receive Date: 20111216
  Receipt Date: 20111206
  Transmission Date: 20120403
  Serious: Yes (Other)
  Sender: FDA-Public Use
  Company Number: PL-SANOFI-AVENTIS-2011SA080250

PATIENT
  Age: 50 Year
  Sex: Female

DRUGS (4)
  1. LEFLUNOMIDE [Suspect]
     Indication: RHEUMATOID ARTHRITIS
     Dates: start: 20110818, end: 20111027
  2. PREDNISONE [Concomitant]
     Indication: RHEUMATOID ARTHRITIS
     Route: 048
     Dates: start: 20000101
  3. PANTOPRAZOLE [Concomitant]
     Route: 048
     Dates: start: 20110818
  4. MAJAMIL [Concomitant]
     Indication: RHEUMATOID ARTHRITIS
     Route: 048

REACTIONS (1)
  - ALANINE AMINOTRANSFERASE INCREASED [None]
